FAERS Safety Report 5769661-9 (Version None)
Quarter: 2008Q2

REPORT INFORMATION
  Report Type: 
  Country: None (occurrence: None)
  Receive Date: 20080612
  Receipt Date: 20080407
  Transmission Date: 20081010
  Serious: No
  Sender: FDA-Public Use
  Company Number: US-ABBOTT-08P-163-0445683-00

PATIENT
  Sex: Female
  Weight: 78.088 kg

DRUGS (9)
  1. HUMIRA [Suspect]
     Indication: CROHN'S DISEASE
     Route: 058
     Dates: start: 20070101
  2. HUMIRA [Suspect]
     Route: 058
  3. HUMIRA [Suspect]
     Route: 058
     Dates: end: 20080328
  4. MESALAMINE [Concomitant]
     Indication: CROHN'S DISEASE
     Route: 048
  5. BUDESONIDE [Concomitant]
     Indication: CROHN'S DISEASE
     Route: 048
  6. ESOMEPRAZOLE MAGNESIUM [Concomitant]
     Indication: GASTROOESOPHAGEAL REFLUX DISEASE
     Route: 048
  7. METOPROLOL [Concomitant]
     Indication: BLOOD PRESSURE
     Route: 048
  8. PRAVASTATIN [Concomitant]
     Indication: BLOOD CHOLESTEROL INCREASED
     Route: 048
  9. SERTRALINE [Concomitant]
     Indication: DEPRESSION
     Route: 048

REACTIONS (5)
  - DIARRHOEA [None]
  - INFLUENZA [None]
  - MUSCLE SPASMS [None]
  - PNEUMONIA [None]
  - SINUSITIS [None]
